FAERS Safety Report 12555281 (Version 1)
Quarter: 2016Q3

REPORT INFORMATION
  Report Type: Spontaneous
  Country: US (occurrence: US)
  Receive Date: 20160714
  Receipt Date: 20160714
  Transmission Date: 20161109
  Serious: No
  Sender: FDA-Public Use
  Company Number: US-BEH-2016070404

PATIENT
  Sex: Male
  Weight: 119.73 kg

DRUGS (25)
  1. HIZENTRA [Suspect]
     Active Substance: HUMAN IMMUNOGLOBULIN G
     Dosage: 18 G, QW
     Route: 058
  2. CRESTOR [Concomitant]
     Active Substance: ROSUVASTATIN CALCIUM
  3. LIDOCAINE/PRILOCAINE [Concomitant]
     Active Substance: LIDOCAINE\PRILOCAINE
  4. VITAMIN D                          /00107901/ [Concomitant]
     Active Substance: ERGOCALCIFEROL
  5. HIZENTRA [Suspect]
     Active Substance: HUMAN IMMUNOGLOBULIN G
     Dosage: UNK
     Route: 058
  6. HUMALOG [Concomitant]
     Active Substance: INSULIN LISPRO
  7. FUROSEMIDE                         /00032602/ [Concomitant]
     Active Substance: FUROSEMIDE
  8. LIPITOR [Concomitant]
     Active Substance: ATORVASTATIN CALCIUM
  9. VERAPAMIL [Concomitant]
     Active Substance: VERAPAMIL HYDROCHLORIDE
  10. METOPROLOL SUCC CT [Concomitant]
  11. HIZENTRA [Suspect]
     Active Substance: HUMAN IMMUNOGLOBULIN G
     Indication: IMMUNODEFICIENCY COMMON VARIABLE
     Dosage: UNK
     Route: 058
  12. ACETAMINOPHEN. [Concomitant]
     Active Substance: ACETAMINOPHEN
  13. EPIPEN [Concomitant]
     Active Substance: EPINEPHRINE
  14. NEURONTIN [Concomitant]
     Active Substance: GABAPENTIN
  15. OMEPRAZOLE                         /00661202/ [Concomitant]
  16. GABAPENTIN. [Concomitant]
     Active Substance: GABAPENTIN
  17. LISINOPRIL. [Concomitant]
     Active Substance: LISINOPRIL
  18. DIPHENHYDRAMINE                    /00000402/ [Concomitant]
     Active Substance: DIPHENHYDRAMINE
  19. LIDOCAINE. [Concomitant]
     Active Substance: LIDOCAINE
  20. WARFARIN [Concomitant]
     Active Substance: WARFARIN
  21. FOLIC ACID. [Concomitant]
     Active Substance: FOLIC ACID
  22. FISH OIL [Concomitant]
     Active Substance: FISH OIL
  23. SLO-NIACIN [Concomitant]
     Active Substance: DIETARY SUPPLEMENT
  24. OXYGEN. [Concomitant]
     Active Substance: OXYGEN
  25. CLONIDINE HCL [Concomitant]
     Active Substance: CLONIDINE HYDROCHLORIDE

REACTIONS (1)
  - Infusion site haemorrhage [Unknown]
